FAERS Safety Report 7384047-1 (Version None)
Quarter: 2011Q1

REPORT INFORMATION
  Report Type: 
  Country: None (occurrence: None)
  Receive Date: 20110330
  Receipt Date: 20110318
  Transmission Date: 20110831
  Serious: Yes (Other)
  Sender: FDA-Public Use
  Company Number: PHHY2011GB22106

PATIENT
  Age: 73 Year
  Sex: Female
  Weight: 73 kg

DRUGS (5)
  1. SOLIFENACIN [Suspect]
  2. AMITRIPTYLINE [Suspect]
  3. GABAPENTIN [Suspect]
     Dosage: 600 MG, TID
     Route: 048
  4. OXYCONTIN [Suspect]
  5. RANITIDINE [Suspect]

REACTIONS (1)
  - TRANSIENT ISCHAEMIC ATTACK [None]
